FAERS Safety Report 25099012 (Version 1)
Quarter: 2025Q1

REPORT INFORMATION
  Report Type: Spontaneous
  Country: GB (occurrence: GB)
  Receive Date: 20250320
  Receipt Date: 20250320
  Transmission Date: 20250409
  Serious: Yes (Other)
  Sender: ALEXION PHARMACEUTICALS
  Company Number: GB-ASTRAZENECA-202503GLO015258GB

PATIENT
  Age: 64 Year

DRUGS (12)
  1. OMEPRAZOLE [Suspect]
     Active Substance: OMEPRAZOLE
     Route: 065
  2. AMPHOTERICIN B [Suspect]
     Active Substance: AMPHOTERICIN B
     Indication: Aspergillus infection
     Route: 065
  3. VANCOMYCIN [Concomitant]
     Active Substance: VANCOMYCIN
     Indication: Sepsis
     Route: 065
  4. ENOXAPARIN [Concomitant]
     Active Substance: ENOXAPARIN
     Route: 065
  5. EPLERENONE [Concomitant]
     Active Substance: EPLERENONE
     Route: 065
  6. FUROSEMIDE [Concomitant]
     Active Substance: FUROSEMIDE
     Route: 065
  7. IVABRADINE [Concomitant]
     Active Substance: IVABRADINE
     Route: 065
  8. MEROPENEM [Concomitant]
     Active Substance: MEROPENEM
     Route: 065
  9. NEBIVOLOL [Concomitant]
     Active Substance: NEBIVOLOL
     Route: 065
  10. SENNA [Concomitant]
     Active Substance: SENNOSIDES
  11. VORICONAZOLE [Concomitant]
     Active Substance: VORICONAZOLE
     Indication: Aspergillus infection
     Route: 065
  12. Adcal [Concomitant]
     Route: 065

REACTIONS (2)
  - Paraesthesia oral [Recovered/Resolved]
  - Hypotension [Recovered/Resolved]
